FAERS Safety Report 5188887-9 (Version None)
Quarter: 2006Q4

REPORT INFORMATION
  Report Type: 
  Country: None (occurrence: None)
  Receive Date: 20061221
  Receipt Date: 20061214
  Transmission Date: 20070319
  Serious: Yes (Hospitalization)
  Sender: FDA-Public Use
  Company Number: AU-BOEHRINGER INGELHEIM PHARMACEUTICALS, INC.-2006-BP-14609AU

PATIENT
  Sex: Male

DRUGS (1)
  1. ATROVENT [Suspect]

REACTIONS (5)
  - LIP BLISTER [None]
  - LIP SWELLING [None]
  - NASAL OEDEMA [None]
  - OEDEMA MOUTH [None]
  - PHARYNGEAL OEDEMA [None]
